FAERS Safety Report 20847265 (Version 3)
Quarter: 2022Q3

REPORT INFORMATION
  Report Type: Report from Study
  Country: US (occurrence: US)
  Receive Date: 20220519
  Receipt Date: 20220707
  Transmission Date: 20221027
  Serious: Yes (Hospitalization)
  Sender: FDA-Public Use
  Company Number: US-JNJFOC-20220531149

PATIENT
  Age: 15 Year
  Sex: Female
  Weight: 52.3 kg

DRUGS (15)
  1. INFLIXIMAB [Suspect]
     Active Substance: INFLIXIMAB
     Indication: Crohn^s disease
     Route: 041
     Dates: start: 201203
  2. INFLIXIMAB [Suspect]
     Active Substance: INFLIXIMAB
     Route: 041
     Dates: start: 20120822
  3. FLUTICASONE [Concomitant]
     Active Substance: FLUTICASONE
  4. CYPROHEPTADINE [Concomitant]
     Active Substance: CYPROHEPTADINE
  5. ONDANSETRON [Concomitant]
     Active Substance: ONDANSETRON
  6. ENTYVIO [Concomitant]
     Active Substance: VEDOLIZUMAB
  7. RUXOLITINIB [Concomitant]
     Active Substance: RUXOLITINIB
  8. COTRIMOXAZOLE [Concomitant]
     Active Substance: SULFAMETHOXAZOLE\TRIMETHOPRIM
  9. ALBUTEROL [Concomitant]
     Active Substance: ALBUTEROL
  10. DICYCLOMINE [Concomitant]
     Active Substance: DICYCLOMINE HYDROCHLORIDE
  11. HERBALS\TURMERIC [Concomitant]
     Active Substance: HERBALS\TURMERIC
  12. ASCORBIC ACID [Concomitant]
     Active Substance: ASCORBIC ACID
  13. LORATADINE [Concomitant]
     Active Substance: LORATADINE
  14. ERGOCALCIFEROL [Concomitant]
     Active Substance: ERGOCALCIFEROL
  15. CANAKINUMAB [Concomitant]
     Active Substance: CANAKINUMAB

REACTIONS (1)
  - Stoma obstruction [Recovered/Resolved]

NARRATIVE: CASE EVENT DATE: 20220425
